FAERS Safety Report 6330220-0 (Version None)
Quarter: 2009Q3

REPORT INFORMATION
  Report Type: 
  Country: None (occurrence: None)
  Receive Date: 20090827
  Receipt Date: 20090727
  Transmission Date: 20100115
  Serious: No
  Sender: FDA-Public Use
  Company Number: A0799132A

PATIENT
  Sex: Female

DRUGS (1)
  1. LAMICTAL [Suspect]
     Indication: BIPOLAR DISORDER
     Dosage: 25MG UNKNOWN
     Route: 048

REACTIONS (2)
  - PRURITUS GENERALISED [None]
  - VULVOVAGINAL PRURITUS [None]
